FAERS Safety Report 5053636-1 (Version None)
Quarter: 2006Q2

REPORT INFORMATION
  Report Type: 
  Country: None (occurrence: None)
  Receive Date: 20060614
  Receipt Date: 20060502
  Transmission Date: 20061013
  Serious: Yes (Other)
  Sender: FDA-Public Use
  Company Number: 446807

PATIENT
  Sex: Female

DRUGS (9)
  1. BONIVA [Suspect]
     Indication: DRUG USE FOR UNKNOWN INDICATION
     Dates: start: 20060315
  2. PREDNISONE TAB [Concomitant]
  3. RELAFEN [Concomitant]
  4. METHOTREXATE [Concomitant]
  5. ENBREL [Concomitant]
  6. NEXIUM [Concomitant]
  7. ENALAPRIL MALEATE [Concomitant]
  8. FOLIC ACID [Concomitant]
  9. MULTIVITAMIN [Concomitant]

REACTIONS (1)
  - EYE INFLAMMATION [None]
